FAERS Safety Report 15328966 (Version 1)
Quarter: 2018Q4

REPORT INFORMATION
  Report Type: Spontaneous
  Country: FR (occurrence: FR)
  Receive Date: 20180829
  Receipt Date: 20180829
  Transmission Date: 20190204
  Serious: Yes (Hospitalization)
  Sender: FDA-Public Use
  Company Number: FR-ACCORD-071101

PATIENT
  Age: 73 Year
  Sex: Female
  Weight: 82 kg

DRUGS (13)
  1. ONDANSETRON ACCORD [Suspect]
     Active Substance: ONDANSETRON
     Indication: PROPHYLAXIS OF NAUSEA AND VOMITING
     Dosage: 8 MG TO J1
     Route: 042
     Dates: start: 20180522, end: 20180612
  2. METHYLPREDNISOLONE MYLAN [Suspect]
     Active Substance: METHYLPREDNISOLONE
     Indication: PREMEDICATION
     Dosage: 80 MG TO J1
     Route: 042
     Dates: start: 20180522, end: 20180612
  3. PANTOPRAZOLE ALMUS [Concomitant]
  4. SPIRONOLACTONE ACTAVIS [Concomitant]
     Active Substance: SPIRONOLACTONE
  5. ASPIRINE PROTECT [Concomitant]
     Active Substance: ASPIRIN
  6. SOLUPRED (PREDNISOLONE SODIUM METAZOATE) [Suspect]
     Active Substance: PREDNISOLONE SODIUM METAZOATE
     Indication: PREMEDICATION
     Dosage: 100 MG FROM D0 TO D4
     Route: 048
     Dates: start: 20180521, end: 20180614
  7. NEO-MERCAZOLE [Concomitant]
     Active Substance: CARBIMAZOLE
  8. BISOPROLOL BIOGARAN [Concomitant]
     Active Substance: BISOPROLOL FUMARATE
  9. CYCLOPHOSPHAMIDE SANDOZ [Suspect]
     Active Substance: CYCLOPHOSPHAMIDE
     Indication: BREAST CANCER
     Route: 041
     Dates: start: 20180522, end: 20180612
  10. DOCETAXEL ACCORD [Suspect]
     Active Substance: DOCETAXEL
     Indication: BREAST CANCER
     Route: 042
     Dates: start: 20180522, end: 20180612
  11. ZARZIO [Suspect]
     Active Substance: FILGRASTIM
     Indication: CHEMOTHERAPY CYTOKINE PROPHYLAXIS
     Dosage: FROM J3
     Route: 042
     Dates: start: 20180525, end: 20180622
  12. EMEND [Suspect]
     Active Substance: APREPITANT
     Indication: PROPHYLAXIS OF NAUSEA AND VOMITING
     Dosage: 125 MG J1 THEN 80 MG AT D2 AND D3
     Route: 048
     Dates: start: 20180628, end: 20180630
  13. LISINOPRIL BIOGARAN [Concomitant]
     Active Substance: LISINOPRIL

REACTIONS (3)
  - Hepatic pain [Not Recovered/Not Resolved]
  - Hepatocellular injury [Not Recovered/Not Resolved]
  - Jaundice [Not Recovered/Not Resolved]

NARRATIVE: CASE EVENT DATE: 20180623
